FAERS Safety Report 8883119 (Version 1)
Quarter: 2012Q4

REPORT INFORMATION
  Report Type: 
  Country: US (occurrence: US)
  Receive Date: 20121102
  Receipt Date: 20121102
  Transmission Date: 20130627
  Serious: Yes (Hospitalization, Other)
  Sender: FDA-Public Use
  Company Number: US-ABBOTT-12P-163-0955680-00

PATIENT
  Sex: Male
  Weight: 83.99 kg

DRUGS (1)
  1. BIAXIN [Suspect]
     Indication: HELICOBACTER INFECTION
     Dates: start: 200109

REACTIONS (2)
  - Hypersensitivity [Unknown]
  - Rash generalised [Unknown]
